FAERS Safety Report 9407690 (Version 1)
Quarter: 2013Q3

REPORT INFORMATION
  Report Type: Spontaneous
  Country: US (occurrence: US)
  Receive Date: 20130718
  Receipt Date: 20130718
  Transmission Date: 20140515
  Serious: Yes (Other)
  Sender: FDA-Public Use
  Company Number: US-PFIZER INC-2013210198

PATIENT
  Age: 42 Year
  Sex: Female

DRUGS (3)
  1. ENBREL [Suspect]
     Indication: RHEUMATOID ARTHRITIS
     Dosage: 50 MG, WEEKLY
     Dates: start: 20080915
  2. ENBREL [Suspect]
     Dosage: 50 MG, WEEKLY
  3. METHOTREXATE SODIUM [Suspect]
     Dosage: UNK

REACTIONS (5)
  - Lung disorder [Recovered/Resolved]
  - Limb injury [Recovered/Resolved]
  - Musculoskeletal stiffness [Recovered/Resolved]
  - Injection site swelling [Recovered/Resolved]
  - Injection site hypersensitivity [Recovered/Resolved]
